FAERS Safety Report 7082449-4 (Version None)
Quarter: 2010Q3

REPORT INFORMATION
  Report Type: 
  Country: None (occurrence: None)
  Receive Date: 20100803
  Receipt Date: 20100127
  Transmission Date: 20110219
  Serious: Yes (Death, Other)
  Sender: FDA-Public Use
  Company Number: 219209USA

PATIENT
  Age: 40 Year
  Sex: Male

DRUGS (7)
  1. SERTRALINE HYDROCHLORIDE [Suspect]
     Dosage: ORAL
     Route: 048
  2. MORPHINE [Suspect]
  3. HYDROCODONE BITARTRATE [Suspect]
  4. DIAZEPAM [Suspect]
  5. TEMAZEPAM [Suspect]
  6. CODEINE [Suspect]
  7. CANNABIS SATIVA [Suspect]

REACTIONS (1)
  - ACCIDENTAL OVERDOSE [None]
